FAERS Safety Report 23940231 (Version 2)
Quarter: 2024Q2

REPORT INFORMATION
  Report Type: Spontaneous
  Country: DE (occurrence: DE)
  Receive Date: 20240605
  Receipt Date: 20240621
  Transmission Date: 20240715
  Serious: Yes (Death, Hospitalization, Other)
  Sender: FDA-Public Use
  Company Number: DE-SAMSUNG BIOEPIS-SB-2023-34297

PATIENT
  Age: 67 Year
  Sex: Female
  Weight: 45 kg

DRUGS (20)
  1. OXALIPLATIN [Suspect]
     Active Substance: OXALIPLATIN
     Indication: Oesophageal adenocarcinoma
     Dosage: 85 MG/M2, QD;117 MG
     Route: 065
     Dates: start: 20231208, end: 20231208
  2. OXALIPLATIN [Suspect]
     Active Substance: OXALIPLATIN
     Dosage: 87 MG; 85MG/M2; IV, D1/D15/D29 AND D43 PRE AND POST OP
     Dates: start: 20231208, end: 20240524
  3. OXALIPLATIN [Suspect]
     Active Substance: OXALIPLATIN
     Dosage: 89 MG
     Dates: start: 20240110
  4. DOCETAXEL [Suspect]
     Active Substance: DOCETAXEL\DOCETAXEL ANHYDROUS
     Indication: Oesophageal adenocarcinoma
     Dosage: 50 MG/M2, QD;69 MG
     Route: 042
     Dates: start: 20231208, end: 20231208
  5. DOCETAXEL [Suspect]
     Active Substance: DOCETAXEL\DOCETAXEL ANHYDROUS
     Dosage: 51 MG, 50MG/M2, IV, D1/D15/D29 AND D43 PRE AN POST OP
     Dates: start: 20231208, end: 20240524
  6. DOCETAXEL [Suspect]
     Active Substance: DOCETAXEL\DOCETAXEL ANHYDROUS
     Dosage: 53 MG
     Route: 065
     Dates: start: 20240110
  7. FLUOROURACIL [Suspect]
     Active Substance: FLUOROURACIL
     Indication: Oesophageal adenocarcinoma
     Dosage: 2600 MG/M2; 3588 MG
     Route: 042
     Dates: start: 20231208, end: 20231208
  8. FLUOROURACIL [Suspect]
     Active Substance: FLUOROURACIL
     Dosage: 2652 MG/M2, 2600MG/M2, IV,D1/D15/D29 AND D43 PRE AND POST OP
     Dates: start: 20231208, end: 20240524
  9. FLUOROURACIL [Suspect]
     Active Substance: FLUOROURACIL
     Dosage: 2730 MG
     Route: 065
     Dates: start: 20240110
  10. ONTRUZANT [Suspect]
     Active Substance: TRASTUZUMAB-DTTB
     Indication: Oesophageal adenocarcinoma
     Dosage: 8 MG/KG, QD;D1 344 MILLIGRAM
     Route: 042
     Dates: start: 20231208, end: 20231208
  11. ONTRUZANT [Suspect]
     Active Substance: TRASTUZUMAB-DTTB
     Dosage: 332 MG, Q3W, D1; 8MG/KG, IV, 6MG/KG IV D22/D43 PRE AND POST OP, AFTERWARDS 6MG/KG IV D1 Q3W
     Route: 042
     Dates: start: 20240524
  12. PEMBROLIZUMAB [Suspect]
     Active Substance: PEMBROLIZUMAB
     Indication: Oesophageal adenocarcinoma
     Dosage: 200 MG, QD;FLAT DOSE
     Route: 065
     Dates: start: 20231208, end: 20231208
  13. PEMBROLIZUMAB [Suspect]
     Active Substance: PEMBROLIZUMAB
     Dosage: 200 MG, Q3W, 200MG, FLAT DOSE, D1/D22/D43 PRE AND POST OP, AFTERWARDS D1 Q3W
     Dates: start: 20231208, end: 20240524
  14. LEUCOVORIN [Suspect]
     Active Substance: LEUCOVORIN\LEUCOVORIN CALCIUM
     Indication: Oesophageal adenocarcinoma
     Dosage: 200 MG/M2, QD
     Route: 065
     Dates: start: 20231208, end: 20231208
  15. LEUCOVORIN [Suspect]
     Active Substance: LEUCOVORIN\LEUCOVORIN CALCIUM
     Dosage: 272 MG/M2, D1/D51/D29 AND D43 PRE AND POST OP
     Route: 042
     Dates: start: 20231208, end: 20240524
  16. LEUCOVORIN [Suspect]
     Active Substance: LEUCOVORIN\LEUCOVORIN CALCIUM
     Dosage: 280 MG
     Route: 065
     Dates: start: 20240110
  17. RAMIPRIL [Concomitant]
     Active Substance: RAMIPRIL
     Indication: Product used for unknown indication
     Dosage: 5 MG, QD, 1-0-0
  18. ASPIRIN [Concomitant]
     Active Substance: ASPIRIN
     Indication: Product used for unknown indication
     Dosage: 100 MG, QD, 1-0-0
  19. HYDROCHLOROTHIAZIDE [Concomitant]
     Active Substance: HYDROCHLOROTHIAZIDE
     Indication: Product used for unknown indication
     Dosage: 25 MG, QD
  20. AMLODIPINE [Concomitant]
     Active Substance: AMLODIPINE BESYLATE
     Indication: Product used for unknown indication
     Dosage: 5 MG, QD, 1-0-0

REACTIONS (9)
  - Immune-mediated adverse reaction [Fatal]
  - Prerenal failure [Unknown]
  - Chills [Recovered/Resolved]
  - Pyrexia [Recovered/Resolved]
  - Diarrhoea [Recovered/Resolved]
  - Exposure to SARS-CoV-2 [Unknown]
  - COVID-19 [Recovered/Resolved]
  - Toxicity to various agents [Unknown]
  - Product use in unapproved indication [Unknown]
